FAERS Safety Report 19441308 (Version 1)
Quarter: 2021Q2

REPORT INFORMATION
  Report Type: Spontaneous
  Country: GB (occurrence: GB)
  Receive Date: 20210621
  Receipt Date: 20210621
  Transmission Date: 20210717
  Serious: Yes (Hospitalization, Other)
  Sender: FDA-Public Use
  Company Number: GB-TEVA-2021-GB-1923744

PATIENT
  Age: 71 Year
  Sex: Male

DRUGS (5)
  1. RANITIDINE. [Concomitant]
     Active Substance: RANITIDINE
  2. CITALOPRAM [Concomitant]
     Active Substance: CITALOPRAM HYDROBROMIDE
     Dosage: 20 MILLIGRAM DAILY;
  3. TRIMETHOPRIM. [Suspect]
     Active Substance: TRIMETHOPRIM
     Indication: URINARY TRACT INFECTION
     Dosage: 400 MILLIGRAM DAILY;
     Route: 048
     Dates: start: 20200130, end: 20200131
  4. FERROUS SULFATE. [Concomitant]
     Active Substance: FERROUS SULFATE
  5. OLANZAPINE. [Concomitant]
     Active Substance: OLANZAPINE
     Dosage: 10 MG

REACTIONS (9)
  - Hydronephrosis [Unknown]
  - Nausea [Unknown]
  - Dehydration [Unknown]
  - Nephrolithiasis [Unknown]
  - Drug ineffective [Unknown]
  - Acute kidney injury [Recovered/Resolved]
  - Renal mass [Unknown]
  - Abdominal pain [Unknown]
  - Bladder mass [Unknown]

NARRATIVE: CASE EVENT DATE: 20200131
